FAERS Safety Report 7599736-3 (Version None)
Quarter: 2011Q2

REPORT INFORMATION
  Report Type: 
  Country: None (occurrence: None)
  Receive Date: 20110629
  Receipt Date: 20110617
  Transmission Date: 20111010
  Serious: Yes (Death)
  Sender: FDA-Public Use
  Company Number: 1000021786

PATIENT
  Age: 81 Year
  Sex: Male

DRUGS (7)
  1. FUROSEMIDE [Concomitant]
  2. TIOTROPIUM BROMIDE (TIOTROPIUM BROMIDE) (TIOTROPIUM BROMIDE) [Concomitant]
  3. CORICOSTEROIDS (CORTICOSTEROIDS) (CORTICOSTEROIDS) [Concomitant]
  4. ROFLUMILAST (ROFLUMILAST) (500 MICROGRAM, TABLETS) [Suspect]
     Indication: CHRONIC OBSTRUCTIVE PULMONARY DISEASE
     Dosage: 500 MCG(500 MCG, 1 IN 1 D), ORAL
     Route: 048
     Dates: start: 20110101
  5. BRONCHODILATATORS AGONIST BETA 2 (BRONCHODILATATORS AGONIST BETA 2) (B [Concomitant]
  6. OXYGEN (OXYGEN) (OXYGEN) [Concomitant]
  7. METFORMINE HYDROCHLORIDE (METFORMINE HYDROCHLORIDE) (METFORMINE HYDROC [Concomitant]

REACTIONS (1)
  - DEATH [None]
